FAERS Safety Report 10043985 (Version 2)
Quarter: 2014Q1

REPORT INFORMATION
  Report Type: Spontaneous
  Country: US (occurrence: US)
  Receive Date: 20140328
  Receipt Date: 20140328
  Transmission Date: 20141002
  Serious: No
  Sender: FDA-Public Use
  Company Number: US-MYLANLABS-2013S1013808

PATIENT
  Age: 68 Year
  Sex: Female
  Weight: 68.04 kg

DRUGS (4)
  1. EMSAM (SELEGILINE TRANSDERMAL SYSTEM) [Suspect]
     Indication: DEPRESSION
     Dosage: DAILY
     Route: 062
     Dates: start: 20130427
  2. LORAZEPAM [Concomitant]
     Indication: ANXIETY
  3. PRILOSEC [Concomitant]
     Indication: GASTROOESOPHAGEAL REFLUX DISEASE
     Route: 048
  4. LIPITOR [Concomitant]
     Indication: BLOOD CHOLESTEROL INCREASED

REACTIONS (4)
  - Lethargy [Not Recovered/Not Resolved]
  - Hypersensitivity [Not Recovered/Not Resolved]
  - Headache [Not Recovered/Not Resolved]
  - Nausea [Not Recovered/Not Resolved]
